FAERS Safety Report 18524561 (Version 1)
Quarter: 2020Q4

REPORT INFORMATION
  Report Type: Report from Study
  Country: None (occurrence: US)
  Receive Date: 20201120
  Receipt Date: 20201120
  Transmission Date: 20210114
  Serious: Yes (Hospitalization)
  Sender: FDA-Public Use
  Company Number: US-ABBVIE-20K-163-3656051-00

PATIENT
  Sex: Female

DRUGS (1)
  1. HUMIRA [Suspect]
     Active Substance: ADALIMUMAB
     Indication: CROHN^S DISEASE
     Dosage: CITRATE FREE
     Route: 058

REACTIONS (7)
  - Paraesthesia [Unknown]
  - Type III immune complex mediated reaction [Recovering/Resolving]
  - Headache [Unknown]
  - Back pain [Unknown]
  - Mobility decreased [Unknown]
  - Hypoaesthesia [Unknown]
  - Neck pain [Unknown]
